FAERS Safety Report 5238259-3 (Version None)
Quarter: 2007Q1

REPORT INFORMATION
  Report Type: 
  Country: None (occurrence: None)
  Receive Date: 20061208
  Receipt Date: 20050531
  Transmission Date: 20070707
  Serious: Yes (Other)
  Sender: FDA-Public Use
  Company Number: 2005UW08352

PATIENT
  Age: 47 Year
  Sex: Female
  Weight: 39.008 kg

DRUGS (3)
  1. CRESTOR [Suspect]
     Dosage: HIGH CHOLESTEROL
  2. ANTIBIOTIC [Concomitant]
  3. DYAZIDE [Concomitant]

REACTIONS (1)
  - SENSATION OF FOREIGN BODY [None]
